FAERS Safety Report 5045512-5 (Version None)
Quarter: 2006Q2

REPORT INFORMATION
  Report Type: 
  Country: None (occurrence: None)
  Receive Date: 20060601
  Receipt Date: 20060414
  Transmission Date: 20061013
  Serious: No
  Sender: FDA-Public Use
  Company Number: 2006-BP-04095BP

PATIENT
  Age: 63 Year
  Sex: Female

DRUGS (10)
  1. SPIRIVA [Suspect]
     Indication: CHRONIC OBSTRUCTIVE PULMONARY DISEASE
     Dosage: 18 MCG (18 MCG,1 IN 1D),IH
     Dates: start: 20060209
  2. FLOVENT [Concomitant]
  3. FORADIL [Concomitant]
  4. ALBUTEROL SPIROS [Concomitant]
  5. PREDNISONE TAB [Concomitant]
  6. ASPIRIN [Concomitant]
  7. ATIVAN [Concomitant]
  8. DARVOCET-N 100 [Concomitant]
  9. PEPCID [Concomitant]
  10. NICOTINE LOZENGES [Concomitant]

REACTIONS (1)
  - HAEMOPTYSIS [None]
